FAERS Safety Report 9834249 (Version 3)
Quarter: 2014Q2

REPORT INFORMATION
  Report Type: Report from Study
  Country: CA (occurrence: CA)
  Receive Date: 20140122
  Receipt Date: 20140616
  Transmission Date: 20141212
  Serious: Yes (Hospitalization)
  Sender: FDA-Public Use
  Company Number: CA-BRISTOL-MYERS SQUIBB COMPANY-20017786

PATIENT
  Age: 54 Year
  Sex: Female

DRUGS (4)
  1. ORENCIA [Suspect]
     Indication: RHEUMATOID ARTHRITIS
     Dosage: 1DF=750 UNIT NOS?ONGOING
     Route: 042
     Dates: start: 20111122
  2. METHOTREXATE [Concomitant]
  3. PREDNISONE [Concomitant]
  4. ASPIRIN [Concomitant]

REACTIONS (3)
  - Road traffic accident [Unknown]
  - Lower limb fracture [Unknown]
  - Pain [Unknown]
